FAERS Safety Report 7521009-5 (Version None)
Quarter: 2011Q2

REPORT INFORMATION
  Report Type: 
  Country: None (occurrence: None)
  Receive Date: 20110603
  Receipt Date: 20101115
  Transmission Date: 20111010
  Serious: No
  Sender: FDA-Public Use
  Company Number: US-BAYER-2010-002813

PATIENT
  Age: 78 Year
  Sex: Male

DRUGS (6)
  1. TRAVATAN [Concomitant]
  2. COZAAR [Concomitant]
  3. ALLOPURINOLUM [Concomitant]
  4. SIMVASTATIN [Concomitant]
  5. LEVITRA [Suspect]
     Indication: ERECTILE DYSFUNCTION
     Dosage: 20 MG, PRN
     Route: 048
     Dates: start: 20101113
  6. TIMOLOL MALEATE [Concomitant]

REACTIONS (2)
  - SKIN WARM [None]
  - FEELING HOT [None]
